FAERS Safety Report 13935570 (Version 1)
Quarter: 2017Q3

REPORT INFORMATION
  Report Type: Report from Study
  Country: None (occurrence: CA)
  Receive Date: 20170905
  Receipt Date: 20170905
  Transmission Date: 20171127
  Serious: Yes (Hospitalization)
  Sender: FDA-Public Use
  Company Number: CA-BIOVITRUM-2017CA0819

PATIENT
  Sex: Female

DRUGS (1)
  1. KINERET [Suspect]
     Active Substance: ANAKINRA
     Indication: SCHNITZLER^S SYNDROME
     Route: 058
     Dates: start: 20170809

REACTIONS (2)
  - Nephrolithiasis [Not Recovered/Not Resolved]
  - Device related sepsis [Unknown]
